FAERS Safety Report 8109741-6 (Version None)
Quarter: 2012Q1

REPORT INFORMATION
  Report Type: 
  Country: None (occurrence: None)
  Receive Date: 20120202
  Receipt Date: 20120118
  Transmission Date: 20120608
  Serious: No
  Sender: FDA-Public Use
  Company Number: US-AMGEN-USASP2012002472

PATIENT
  Age: 64 Year
  Sex: Female

DRUGS (2)
  1. METHOTREXATE [Concomitant]
  2. ENBREL [Suspect]
     Indication: RHEUMATOID ARTHRITIS
     Dosage: 50 MG, QWK
     Dates: start: 20090501, end: 20120106

REACTIONS (6)
  - SINUS DISORDER [None]
  - SINUSITIS [None]
  - SNEEZING [None]
  - HAIR GROWTH ABNORMAL [None]
  - ALOPECIA [None]
  - NASAL POLYPS [None]
